FAERS Safety Report 20663224 (Version 1)
Quarter: 2022Q2

REPORT INFORMATION
  Report Type: Spontaneous
  Country: RS (occurrence: RS)
  Receive Date: 20220401
  Receipt Date: 20220401
  Transmission Date: 20220721
  Serious: Yes (Death, Other)
  Sender: FDA-Public Use
  Company Number: RS-009507513-2203SRB009013

PATIENT
  Sex: Female

DRUGS (1)
  1. KEYTRUDA [Suspect]
     Active Substance: PEMBROLIZUMAB
     Indication: Metastatic malignant melanoma
     Dosage: 5 CYCLES
     Dates: start: 20191022, end: 20200305

REACTIONS (2)
  - Death [Fatal]
  - Therapy partial responder [Unknown]

NARRATIVE: CASE EVENT DATE: 20211128
